FAERS Safety Report 8181854-2 (Version None)
Quarter: 2012Q1

REPORT INFORMATION
  Report Type: 
  Country: None (occurrence: None)
  Receive Date: 20120302
  Receipt Date: 20120228
  Transmission Date: 20120608
  Serious: Yes (Life-Threatening)
  Sender: FDA-Public Use
  Company Number: CA-ROCHE-1044623

PATIENT
  Age: 69 Year
  Sex: Male
  Weight: 62.9 kg

DRUGS (3)
  1. SENNA [Concomitant]
     Dosage: SENAKOTE
     Dates: start: 20120201
  2. VEMURAFENIB [Suspect]
     Indication: MALIGNANT MELANOMA
     Dosage: LAST DOSE PRIOR TO SAE: 25 FEB 2012; TEMPORARILY INTERRUPTED
     Route: 048
     Dates: start: 20120222, end: 20120226
  3. LACTULOSE [Concomitant]
     Dates: start: 20120201

REACTIONS (1)
  - JEJUNAL PERFORATION [None]
